FAERS Safety Report 7126411-1 (Version None)
Quarter: 2010Q4

REPORT INFORMATION
  Report Type: 
  Country: None (occurrence: None)
  Receive Date: 20101129
  Receipt Date: 20101118
  Transmission Date: 20110411
  Serious: Yes (Hospitalization)
  Sender: FDA-Public Use
  Company Number: FR-JNJFOC-20101107865

PATIENT
  Age: 17 Year
  Sex: Female

DRUGS (2)
  1. ZALDIAR [Suspect]
     Indication: DYSMENORRHOEA
     Route: 048
  2. ZALDIAR [Suspect]
     Route: 048

REACTIONS (2)
  - EPILEPSY [None]
  - INTENTIONAL OVERDOSE [None]
